FAERS Safety Report 14224234 (Version 2)
Quarter: 2018Q1

REPORT INFORMATION
  Report Type: Spontaneous
  Country: BR (occurrence: BR)
  Receive Date: 20171126
  Receipt Date: 20180226
  Transmission Date: 20180508
  Serious: Yes (Other)
  Sender: FDA-Public Use
  Company Number: PHHY2017BR171050

PATIENT
  Sex: Male
  Weight: 107 kg

DRUGS (3)
  1. TIOTROPIUM [Suspect]
     Active Substance: TIOTROPIUM
     Indication: CHRONIC OBSTRUCTIVE PULMONARY DISEASE
     Dosage: UNK
     Route: 065
     Dates: start: 2015
  2. LOSARTAN. [Concomitant]
     Active Substance: LOSARTAN
     Indication: HYPERTENSION
     Dosage: 1 DF, QD
     Route: 048
  3. BUDESONIDE, FORMOTEROL FUMARATE [Suspect]
     Active Substance: BUDESONIDE\FORMOTEROL FUMARATE DIHYDRATE
     Indication: CHRONIC OBSTRUCTIVE PULMONARY DISEASE
     Dosage: 1 DF, Q12H
     Route: 055
     Dates: start: 2008

REACTIONS (3)
  - Sleep apnoea syndrome [Recovered/Resolved]
  - Cardiac failure [Recovered/Resolved]
  - Lung disorder [Recovered/Resolved]
